FAERS Safety Report 8071340-2 (Version None)
Quarter: 2012Q1

REPORT INFORMATION
  Report Type: 
  Country: None (occurrence: None)
  Receive Date: 20120125
  Receipt Date: 20120123
  Transmission Date: 20120608
  Serious: Yes (Hospitalization, Other)
  Sender: FDA-Public Use
  Company Number: US-PFIZER INC-US-WYE-H18393610

PATIENT
  Sex: Female

DRUGS (16)
  1. CLONAZEPAM [Concomitant]
  2. ADVAIR DISKUS 100/50 [Concomitant]
     Dosage: 250/50 MCG
  3. ATENOLOL [Concomitant]
  4. FISH OIL, HYDROGENATED [Concomitant]
  5. KEPPRA [Concomitant]
  6. PANTOPAQUE [Suspect]
     Indication: GASTROOESOPHAGEAL REFLUX DISEASE
     Dosage: 40 MG, 2X/DAY
  7. PANTOPRAZOLE [Suspect]
  8. ALBUTEROL [Concomitant]
     Indication: ASTHMA
     Dosage: AS NEEDED
     Route: 055
  9. GLUCOSAMINE [Concomitant]
     Indication: ARTHRITIS
  10. NEURONTIN [Suspect]
     Indication: CONVULSION
     Dosage: UNK
     Dates: start: 20020101, end: 20060101
  11. DILANTIN-125 [Suspect]
     Indication: GRAND MAL CONVULSION
     Dosage: UNK
     Dates: start: 19890101
  12. ACETYLSALICYLIC ACID [Concomitant]
  13. PROTONIX [Suspect]
     Indication: PANCREATITIS
     Dosage: 40.0 MG, 1X/DAY
     Dates: end: 20070101
  14. PANTOPRAZOLE [Suspect]
     Indication: PANCREATITIS
     Dosage: 40 MG, 1X/DAY
     Dates: start: 20070101
  15. PROTONIX [Suspect]
     Indication: GASTROOESOPHAGEAL REFLUX DISEASE
  16. PANTOPRAZOLE [Suspect]
     Dosage: 40 MG, UNK

REACTIONS (7)
  - CONVULSION [None]
  - OXYGEN SATURATION DECREASED [None]
  - BLOOD PRESSURE INCREASED [None]
  - GASTROOESOPHAGEAL REFLUX DISEASE [None]
  - CEREBRAL CYST [None]
  - DRUG INEFFECTIVE [None]
  - PANCREATITIS [None]
